FAERS Safety Report 17266438 (Version 1)
Quarter: 2020Q1

REPORT INFORMATION
  Report Type: Spontaneous
  Country: US (occurrence: US)
  Receive Date: 20200114
  Receipt Date: 20200114
  Transmission Date: 20200409
  Serious: No
  Sender: FDA-Public Use
  Company Number: US-JNJFOC-20200105968

PATIENT
  Sex: Female
  Weight: 59.02 kg

DRUGS (1)
  1. WOMENS ROGAINE UNSCENTED [Suspect]
     Active Substance: MINOXIDIL
     Indication: ALOPECIA
     Dosage: DOSE AND FREQUENCY: LITTLE BIT IN THE CAP, LIKE THE INSTRUCTIONS AND ONCE A DAY.
     Route: 061

REACTIONS (3)
  - Application site vesicles [Recovered/Resolved]
  - Wrong technique in product usage process [Unknown]
  - Application site pain [Recovering/Resolving]
